FAERS Safety Report 22237239 (Version 1)
Quarter: 2023Q2

REPORT INFORMATION
  Report Type: Spontaneous
  Country: US (occurrence: None)
  Receive Date: 20230421
  Receipt Date: 20230421
  Transmission Date: 20230722
  Serious: No
  Sender: FDA-Public Use
  Company Number: US-ROCHE-3139397

PATIENT
  Sex: Female

DRUGS (1)
  1. ESBRIET [Suspect]
     Active Substance: PIRFENIDONE
     Indication: Idiopathic pulmonary fibrosis
     Dosage: 2 CAPSULES 2 TIMES/DAY WITH MEAL 3 CAPSULES 1 TIME/DAY WITH MEAL= TOTAL 7 CAPSULES/DAY
     Route: 048
     Dates: start: 201811

REACTIONS (1)
  - Fatigue [Unknown]
